FAERS Safety Report 9407243 (Version 1)
Quarter: 2013Q3

REPORT INFORMATION
  Report Type: Spontaneous
  Country: US (occurrence: US)
  Receive Date: 20130718
  Receipt Date: 20130718
  Transmission Date: 20140515
  Serious: No
  Sender: FDA-Public Use
  Company Number: US-009507513-1307USA006311

PATIENT
  Sex: Female

DRUGS (1)
  1. ZIOPTAN [Suspect]
     Route: 047

REACTIONS (1)
  - Eye swelling [Unknown]
